FAERS Safety Report 7475828-4 (Version None)
Quarter: 2011Q2

REPORT INFORMATION
  Report Type: 
  Country: None (occurrence: None)
  Receive Date: 20110512
  Receipt Date: 20110506
  Transmission Date: 20111010
  Serious: Yes (Other)
  Sender: FDA-Public Use
  Company Number: US-ABBOTT-11P-163-0724714-00

PATIENT
  Age: 46 Year
  Sex: Female

DRUGS (6)
  1. HUMIRA [Suspect]
     Indication: PSORIATIC ARTHROPATHY
  2. IBUPROFEN [Concomitant]
     Indication: ARTHRALGIA
  3. IBUPROFEN [Concomitant]
     Indication: PSORIATIC ARTHROPATHY
  4. HUMIRA [Suspect]
     Dates: start: 20110427
  5. TRAMADOL HYDROCHLORIDE [Concomitant]
     Indication: PAIN
  6. METOPROLOL TARTRATE [Concomitant]
     Indication: HYPERTENSION

REACTIONS (11)
  - HAEMOPTYSIS [None]
  - DRUG INEFFECTIVE [None]
  - RASH PRURITIC [None]
  - INTERVERTEBRAL DISC CALCIFICATION [None]
  - HAEMORRHAGE [None]
  - AORTIC RUPTURE [None]
  - DEVICE LEAKAGE [None]
  - PNEUMONIA [None]
  - COLLAPSE OF LUNG [None]
  - RASH ERYTHEMATOUS [None]
  - INTERVERTEBRAL DISC PROTRUSION [None]
